FAERS Safety Report 11678309 (Version 1)
Quarter: 2015Q4

REPORT INFORMATION
  Report Type: Report from Study
  Country: AU (occurrence: AU)
  Receive Date: 20151028
  Receipt Date: 20151028
  Transmission Date: 20160304
  Serious: Yes (Hospitalization, Other)
  Sender: FDA-Public Use
  Company Number: PHHY2015AU137695

PATIENT
  Age: 45 Year
  Sex: Male
  Weight: 102.95 kg

DRUGS (28)
  1. PANTOPRAZOLE [Concomitant]
     Active Substance: PANTOPRAZOLE SODIUM
     Indication: GASTROOESOPHAGEAL REFLUX DISEASE
     Dosage: 20 MG, BID
     Route: 065
  2. RAMACE [Concomitant]
     Indication: HYPERTENSION
     Dosage: 1.25 MG, QD
     Route: 065
  3. VALIUM [Concomitant]
     Active Substance: DIAZEPAM
     Indication: ANXIETY
     Dosage: 0.5 DF, QD AT NIGHT
     Route: 065
  4. NOVORAPID [Concomitant]
     Active Substance: INSULIN ASPART
     Indication: TYPE 2 DIABETES MELLITUS
     Route: 058
  5. LIPITOR [Concomitant]
     Active Substance: ATORVASTATIN CALCIUM
     Indication: HYPERCHOLESTEROLAEMIA
     Dosage: 80 MG, QD
     Route: 065
  6. SOMAC [Concomitant]
     Active Substance: PANTOPRAZOLE SODIUM
     Indication: GASTROOESOPHAGEAL REFLUX DISEASE
     Dosage: 40 MG, QD IN MORNING WITH FOOD
     Route: 048
  7. SERENACE [Concomitant]
     Active Substance: HALOPERIDOL
     Indication: AFFECTIVE DISORDER
     Dosage: 1/2 IN MORING, 1/2 IN MIDDAY AND 1 TBLET IN NIGHT
     Route: 065
  8. TRITACE [Concomitant]
     Active Substance: RAMIPRIL
     Indication: HYPERTENSION
     Dosage: 1.25 MG, QD
     Route: 065
  9. JANUMET [Concomitant]
     Active Substance: METFORMIN HYDROCHLORIDE\SITAGLIPTIN PHOSPHATE
     Indication: TYPE 2 DIABETES MELLITUS
     Route: 065
  10. DIAFORMIN [Concomitant]
     Active Substance: METFORMIN HYDROCHLORIDE
     Indication: TYPE 2 DIABETES MELLITUS
     Dosage: 3 DF, BID WITH FOOD
     Route: 065
  11. VALIUM [Concomitant]
     Active Substance: DIAZEPAM
     Dosage: 2.5 MG, QD
     Route: 065
  12. PLAVIX [Concomitant]
     Active Substance: CLOPIDOGREL BISULFATE
     Indication: PRODUCT USED FOR UNKNOWN INDICATION
     Dosage: 75 MG, UNK
     Route: 065
  13. DILATREND [Concomitant]
     Active Substance: CARVEDILOL
     Indication: PRODUCT USED FOR UNKNOWN INDICATION
     Dosage: 3.125 MG, UNK
     Route: 065
  14. DIAMICRON MR [Concomitant]
     Active Substance: GLICLAZIDE
     Indication: TYPE 2 DIABETES MELLITUS
     Dosage: 2 DF, QD IN MORNING WITH FOOD
     Route: 048
  15. JANUVIA [Concomitant]
     Active Substance: SITAGLIPTIN PHOSPHATE
     Indication: TYPE 2 DIABETES MELLITUS
     Dosage: 100 MG, QD
     Route: 048
  16. LOVAN [Concomitant]
     Active Substance: FLUOXETINE HYDROCHLORIDE
     Indication: AFFECTIVE DISORDER
     Route: 065
  17. SPIRACTIN//SPIRONOLACTONE [Concomitant]
     Indication: PRODUCT USED FOR UNKNOWN INDICATION
     Route: 065
  18. CLOPIDOGREL [Concomitant]
     Active Substance: CLOPIDOGREL BISULFATE
     Indication: PRODUCT USED FOR UNKNOWN INDICATION
     Dosage: 75 MG, UNK
     Route: 065
  19. CLOZARIL [Suspect]
     Active Substance: CLOZAPINE
     Indication: PRODUCT USED FOR UNKNOWN INDICATION
     Dosage: UNK
     Route: 065
     Dates: start: 200901
  20. DIABEX [Concomitant]
     Active Substance: METFORMIN HYDROCHLORIDE
     Indication: TYPE 2 DIABETES MELLITUS
     Dosage: 3 DF, BID WITH FOOD
     Route: 065
  21. NICABATE [Concomitant]
     Active Substance: NICOTINE
     Indication: NICOTINE DEPENDENCE
     Dosage: APPLY 2 PATCHES AT 4 PAM AND REPLACE EVERY 24 HOURS
     Route: 065
  22. PROZAC [Concomitant]
     Active Substance: FLUOXETINE HYDROCHLORIDE
     Indication: AFFECTIVE DISORDER
     Route: 065
  23. CLOZARIL [Suspect]
     Active Substance: CLOZAPINE
     Dosage: 200 MG, QD
     Route: 065
  24. VALPAM [Concomitant]
     Indication: ANXIETY
     Dosage: 0.5 DF, QD AT NIGHT
     Route: 065
  25. SERENACE [Concomitant]
     Active Substance: HALOPERIDOL
     Dosage: 5 MG, UNK
     Route: 065
  26. RISPERDAL CONSTA [Concomitant]
     Active Substance: RISPERIDONE
     Indication: MENTAL DISORDER
     Dosage: 75 MG, BIW
     Route: 030
  27. OSTEVIT D [Concomitant]
     Indication: VITAMIN D DEFICIENCY
     Dosage: 1 DF, QD IN MORNING
     Route: 065
  28. ALDACTONE [Concomitant]
     Active Substance: SPIRONOLACTONE
     Indication: PRODUCT USED FOR UNKNOWN INDICATION
     Dosage: 25 MG, UNK
     Route: 065

REACTIONS (47)
  - Left ventricular dysfunction [Unknown]
  - Pericardial effusion [Unknown]
  - Blood urea increased [Not Recovered/Not Resolved]
  - Hyponatraemia [Unknown]
  - Blood alkaline phosphatase increased [Not Recovered/Not Resolved]
  - Coronary artery dilatation [Unknown]
  - Blood lactate dehydrogenase increased [Recovered/Resolved]
  - Monocyte count increased [Not Recovered/Not Resolved]
  - Blood glucose increased [Not Recovered/Not Resolved]
  - Bilirubin conjugated increased [Recovered/Resolved]
  - Ventricular hypokinesia [Unknown]
  - Blood albumin decreased [Recovered/Resolved]
  - Hypotension [Unknown]
  - Schizophrenia [Unknown]
  - Myocarditis [Unknown]
  - Escherichia urinary tract infection [Unknown]
  - Hallucination, auditory [Unknown]
  - Pleural effusion [Unknown]
  - Blood calcium decreased [Recovered/Resolved]
  - Glycosylated haemoglobin increased [Unknown]
  - Tachycardia [Recovering/Resolving]
  - Coronary artery disease [Unknown]
  - Blood magnesium increased [Recovered/Resolved]
  - Blood bicarbonate increased [Recovered/Resolved]
  - Anion gap increased [Recovered/Resolved]
  - Blood potassium increased [Recovered/Resolved]
  - Neutrophil count increased [Not Recovered/Not Resolved]
  - Blood bilirubin increased [Recovered/Resolved]
  - Aortic stenosis [Unknown]
  - Cardiac failure [Unknown]
  - Syncope [Unknown]
  - Cardiomyopathy [Unknown]
  - Inferior vena cava dilatation [Unknown]
  - Blood phosphorus increased [Recovered/Resolved]
  - Right atrial dilatation [Unknown]
  - White blood cell count increased [Not Recovered/Not Resolved]
  - Body temperature increased [Unknown]
  - Hypoxia [Unknown]
  - Psychotic disorder [Unknown]
  - Atrial flutter [Unknown]
  - Cataract [Unknown]
  - Blood albumin decreased [Recovered/Resolved]
  - Blood chloride decreased [Recovered/Resolved]
  - Blood urea nitrogen/creatinine ratio increased [Not Recovered/Not Resolved]
  - Cardiac disorder [Unknown]
  - Sinus tachycardia [Unknown]
  - Glomerular filtration rate decreased [Not Recovered/Not Resolved]

NARRATIVE: CASE EVENT DATE: 200901
